FAERS Safety Report 7044164-2 (Version None)
Quarter: 2010Q4

REPORT INFORMATION
  Report Type: 
  Country: None (occurrence: None)
  Receive Date: 20101013
  Receipt Date: 20101004
  Transmission Date: 20110411
  Serious: Yes (Other)
  Sender: FDA-Public Use
  Company Number: US-PFIZER INC-2010126386

PATIENT
  Sex: Female
  Weight: 92.063 kg

DRUGS (1)
  1. LYRICA [Suspect]
     Indication: FIBROMYALGIA
     Dosage: 50 MG, 3X/DAY
     Route: 048
     Dates: start: 20100603, end: 20100601

REACTIONS (5)
  - BLOOD TEST ABNORMAL [None]
  - FEELING COLD [None]
  - LOCAL SWELLING [None]
  - MUSCULAR WEAKNESS [None]
  - PHARYNGEAL OEDEMA [None]
